FAERS Safety Report 14735353 (Version 1)
Quarter: 2018Q2

REPORT INFORMATION
  Report Type: Spontaneous
  Country: US (occurrence: US)
  Receive Date: 20180409
  Receipt Date: 20180409
  Transmission Date: 20180711
  Serious: No
  Sender: FDA-Public Use
  Company Number: US-RETROPHIN, INC.-2018RTN00008

PATIENT

DRUGS (2)
  1. CHOLBAM [Suspect]
     Active Substance: CHOLIC ACID
     Indication: CEREBROHEPATORENAL SYNDROME
     Dosage: UNK
     Dates: start: 2017
  2. CHOLBAM [Suspect]
     Active Substance: CHOLIC ACID
     Dosage: UNK

REACTIONS (3)
  - Gamma-glutamyltransferase increased [Unknown]
  - Prescribed underdose [Unknown]
  - Transaminases increased [Unknown]
